FAERS Safety Report 7609385-6 (Version None)
Quarter: 2011Q3

REPORT INFORMATION
  Report Type: 
  Country: None (occurrence: None)
  Receive Date: 20110714
  Receipt Date: 20110707
  Transmission Date: 20111222
  Serious: Yes (Other)
  Sender: FDA-Public Use
  Company Number: PHHY2011US13506

PATIENT
  Sex: Female

DRUGS (13)
  1. LUNESTA [Concomitant]
     Dosage: 3 MG, PRN
  2. FAMPRIDINE [Concomitant]
     Dosage: 10 MG, QD
  3. CALCIUM W/VITAMIN D NOS [Concomitant]
     Dosage: 2 DF, QD
  4. PROVIGIL [Concomitant]
     Dosage: 200 MG, QD
  5. ARICEPT [Concomitant]
     Dosage: 5 MG, QD
  6. LEXAPRO [Concomitant]
     Dosage: 30 MG, QD
  7. FAMPRIDINE [Concomitant]
     Dosage: UNK UKN, UNK
  8. GILENYA [Suspect]
     Indication: MULTIPLE SCLEROSIS
     Dosage: 0.5 MG, QD
     Route: 048
     Dates: start: 20110208, end: 20110629
  9. LEXAPRO [Concomitant]
     Dosage: 20 MG, QD
  10. VITAMIN B-12 [Concomitant]
     Dosage: 400 MG, QD
  11. DETROL [Concomitant]
     Dosage: 4 MG, QD
  12. VITAMIN D [Concomitant]
     Dosage: 1000 U, QD
  13. ALEVE                              /00256202/ [Concomitant]
     Dosage: 220 MG, BID

REACTIONS (3)
  - SUICIDAL IDEATION [None]
  - DEPRESSION [None]
  - CONVULSION [None]
